FAERS Safety Report 5042578-3 (Version None)
Quarter: 2006Q2

REPORT INFORMATION
  Report Type: 
  Country: None (occurrence: None)
  Receive Date: 20060627
  Receipt Date: 20060613
  Transmission Date: 20061013
  Serious: Yes (Hospitalization)
  Sender: FDA-Public Use
  Company Number: 2006076132

PATIENT
  Age: 12 Year
  Sex: Female

DRUGS (3)
  1. ZARONTIN [Suspect]
     Indication: ILL-DEFINED DISORDER
     Dosage: 1 GRAM (250 MG, 4 IN 1 D), ORAL
     Route: 048
     Dates: start: 20060502, end: 20060514
  2. TOPIRAMATE [Concomitant]
  3. DEPAKENE [Concomitant]

REACTIONS (2)
  - RASH [None]
  - SOMNOLENCE [None]
